FAERS Safety Report 11756749 (Version 1)
Quarter: 2015Q4

REPORT INFORMATION
  Report Type: Spontaneous
  Country: US (occurrence: US)
  Receive Date: 20151120
  Receipt Date: 20151120
  Transmission Date: 20160304
  Serious: No
  Sender: FDA-Public Use
  Company Number: US-TEVA-575649USA

PATIENT
  Sex: Female
  Weight: 95.34 kg

DRUGS (10)
  1. FUROSEMIDE. [Suspect]
     Active Substance: FUROSEMIDE
     Indication: PRODUCT USED FOR UNKNOWN INDICATION
     Dosage: 20 MILLIGRAM DAILY;
     Dates: start: 20150526
  2. AMPYRA [Suspect]
     Active Substance: DALFAMPRIDINE
     Indication: GAIT DISTURBANCE
     Dosage: 20 MILLIGRAM DAILY;
     Route: 048
     Dates: start: 2014
  3. LYRICA [Concomitant]
     Active Substance: PREGABALIN
  4. THIOTHIXENE. [Concomitant]
     Active Substance: THIOTHIXENE
  5. SYNTHROID [Concomitant]
     Active Substance: LEVOTHYROXINE SODIUM
  6. SPIRONOLACTONE. [Suspect]
     Active Substance: SPIRONOLACTONE
     Indication: FLUID RETENTION
     Route: 048
  7. BENZTROPINE [Concomitant]
     Active Substance: BENZTROPINE
  8. CELEBREX [Concomitant]
     Active Substance: CELECOXIB
  9. DEPAKOTE [Concomitant]
     Active Substance: DIVALPROEX SODIUM
  10. COPAXONE [Concomitant]
     Active Substance: GLATIRAMER ACETATE

REACTIONS (3)
  - Dizziness [Not Recovered/Not Resolved]
  - Peripheral coldness [Unknown]
  - Fluid retention [Unknown]
